FAERS Safety Report 25131093 (Version 2)
Quarter: 2025Q4

REPORT INFORMATION
  Report Type: Report from Study
  Country: US (occurrence: US)
  Receive Date: 20250327
  Receipt Date: 20251226
  Transmission Date: 20260119
  Serious: Yes (Hospitalization)
  Sender: ESTEVE
  Company Number: US-Esteve Pharmaceuticals SA-2173760

PATIENT
  Age: 15 Year
  Sex: Female

DRUGS (3)
  1. LYSODREN [Suspect]
     Active Substance: MITOTANE
     Indication: Adrenal gland cancer
     Route: 061
     Dates: start: 20250224
  2. TYLENOL [Concomitant]
     Active Substance: ACETAMINOPHEN
  3. LYSODREN [Suspect]
     Active Substance: MITOTANE
     Route: 061

REACTIONS (3)
  - Constipation [Unknown]
  - Product dose omission in error [Unknown]
  - Diarrhoea [Unknown]
